FAERS Safety Report 6571046-2 (Version None)
Quarter: 2010Q1

REPORT INFORMATION
  Report Type: 
  Country: None (occurrence: None)
  Receive Date: 20100204
  Receipt Date: 20100119
  Transmission Date: 20100710
  Serious: Yes (Congenital Anomaly, Other)
  Sender: FDA-Public Use
  Company Number: GB-ELI_LILLY_AND_COMPANY-GB201002000663

PATIENT
  Age: 31 Week

DRUGS (2)
  1. ZYPREXA [Suspect]
     Indication: ANXIETY
     Dosage: 5 MG, EACH EVENING
     Route: 064
     Dates: start: 20090101, end: 20090101
  2. ESCITALOPRAM [Concomitant]
     Indication: DEPRESSION
     Dosage: 20 MG, UNK
     Route: 064

REACTIONS (5)
  - CARDIAC MURMUR [None]
  - DRUG EXPOSURE DURING PREGNANCY [None]
  - INGUINAL HERNIA [None]
  - PATENT DUCTUS ARTERIOSUS [None]
  - UMBILICAL HERNIA [None]
